FAERS Safety Report 9369135 (Version 2)
Quarter: 2013Q3

REPORT INFORMATION
  Report Type: Report from Study
  Country: AU (occurrence: AU)
  Receive Date: 20130626
  Receipt Date: 20130705
  Transmission Date: 20140515
  Serious: Yes (Death)
  Sender: FDA-Public Use
  Company Number: PHHY2013AU065051

PATIENT
  Sex: Female

DRUGS (5)
  1. ACLASTA [Suspect]
     Indication: OSTEOPOROTIC FRACTURE
     Dosage: 5 MG, UNK
     Route: 042
     Dates: start: 20110714
  2. ACLASTA [Suspect]
     Dosage: 5 MG, UNK
     Route: 042
     Dates: start: 20120727
  3. RISPERIDONE [Concomitant]
     Indication: AGITATION
     Dosage: 0.5 MG, BID
     Route: 048
     Dates: start: 20111110, end: 20130129
  4. CLONAZEPAM [Concomitant]
     Indication: ABNORMAL BEHAVIOUR
     Dosage: UNK UKN, BID
     Route: 048
     Dates: start: 20130208, end: 20130226
  5. XALATAN [Concomitant]
     Indication: GLAUCOMA
     Dosage: UNK UKN, UNK
     Dates: start: 20060219, end: 20130226

REACTIONS (1)
  - Dementia [Fatal]
